FAERS Safety Report 6071365-2 (Version None)
Quarter: 2009Q1

REPORT INFORMATION
  Report Type: 
  Country: None (occurrence: None)
  Receive Date: 20090202
  Receipt Date: 20081204
  Transmission Date: 20090719
  Serious: Yes (Hospitalization)
  Sender: FDA-Public Use
  Company Number: 176619USA

PATIENT
  Age: 53 Year
  Sex: Female
  Weight: 66.6788 kg

DRUGS (5)
  1. IFOSFAMIDE [Suspect]
     Indication: LEIOMYOSARCOMA
     Dosage: (4.5 GRAM), INTRAVENOUS DRIP
     Route: 041
     Dates: start: 20080819, end: 20080820
  2. NIMODIPINE [Concomitant]
  3. ENALAPRIL MALEATE [Concomitant]
  4. VENLAFAXINE HCL [Concomitant]
  5. FEXOFENADINE [Concomitant]

REACTIONS (5)
  - DISORIENTATION [None]
  - DIZZINESS [None]
  - DYSTONIA [None]
  - EXOPHTHALMOS [None]
  - HALLUCINATION [None]
